FAERS Safety Report 6007436-6 (Version None)
Quarter: 2008Q4

REPORT INFORMATION
  Report Type: 
  Country: None (occurrence: None)
  Receive Date: 20081217
  Receipt Date: 20080418
  Transmission Date: 20090506
  Serious: No
  Sender: FDA-Public Use
  Company Number: US-ASTRAZENECA-2008UW07935

PATIENT
  Age: 75 Year
  Sex: Female
  Weight: 64.9 kg

DRUGS (6)
  1. CRESTOR [Suspect]
     Indication: BLOOD CHOLESTEROL INCREASED
     Route: 048
     Dates: start: 20080408
  2. PLAVIX [Concomitant]
  3. DYAZIDE [Concomitant]
  4. TENORMIN [Concomitant]
  5. FOSAMAX [Concomitant]
  6. DYNACIRC [Concomitant]

REACTIONS (1)
  - OESOPHAGEAL PAIN [None]
